FAERS Safety Report 6084091-0 (Version None)
Quarter: 2009Q1

REPORT INFORMATION
  Report Type: 
  Country: None (occurrence: None)
  Receive Date: 20090217
  Receipt Date: 20090217
  Transmission Date: 20090719
  Serious: Yes (Other)
  Sender: FDA-Public Use
  Company Number: None

PATIENT
  Age: 76 Year
  Sex: Female
  Weight: 70.3 kg

DRUGS (12)
  1. DILTIAZEM [Suspect]
     Indication: VENTRICULAR TACHYCARDIA
     Dosage: 10 MG IV BOLUS
     Route: 040
     Dates: start: 20080717, end: 20080717
  2. ACETAMINOPHEN [Concomitant]
  3. ALBUTEROL [Concomitant]
  4. DUONEB [Concomitant]
  5. GUAIFENESIN [Concomitant]
  6. LEVOFLOXACIN [Concomitant]
  7. LORAZEPAM [Concomitant]
  8. ONDANSETRON [Concomitant]
  9. PREDNISONE [Concomitant]
  10. SIMVASTATIN [Concomitant]
  11. VICODIN [Concomitant]
  12. COUMADIN [Concomitant]

REACTIONS (2)
  - INJECTION SITE IRRITATION [None]
  - INJECTION SITE PRURITUS [None]
